FAERS Safety Report 8219587-6 (Version None)
Quarter: 2012Q1

REPORT INFORMATION
  Report Type: 
  Country: None (occurrence: None)
  Receive Date: 20120319
  Receipt Date: 20120312
  Transmission Date: 20120608
  Serious: Yes (Other)
  Sender: FDA-Public Use
  Company Number: US-PFIZER INC-2012029605

PATIENT
  Sex: Female
  Weight: 122 kg

DRUGS (5)
  1. OXYCONTIN [Suspect]
     Indication: NEUROPATHY PERIPHERAL
     Dosage: 80 MG, 2X/DAY
     Dates: start: 20060101
  2. NEURONTIN [Suspect]
     Indication: NEUROPATHY PERIPHERAL
     Dosage: 1600 MG, 3X/DAY
     Dates: start: 20020101
  3. LIPITOR [Suspect]
     Indication: BLOOD CHOLESTEROL INCREASED
     Dosage: 20 MG, DAILY
  4. OXYCONTIN [Suspect]
     Indication: PAIN
  5. DOCUSATE SODIUM [Concomitant]
     Indication: CONSTIPATION
     Dosage: UNK

REACTIONS (3)
  - PERIPHERAL SENSORY NEUROPATHY [None]
  - PAIN [None]
  - NEUROPATHY PERIPHERAL [None]
